FAERS Safety Report 5160635-8 (Version None)
Quarter: 2006Q4

REPORT INFORMATION
  Report Type: 
  Country: None (occurrence: None)
  Receive Date: 20061121
  Receipt Date: 20061107
  Transmission Date: 20070319
  Serious: Yes (Death, Hospitalization)
  Sender: FDA-Public Use
  Company Number: 2005BI012829

PATIENT
  Age: 54 Year
  Sex: Female

DRUGS (7)
  1. AVONEX [Suspect]
     Indication: MULTIPLE SCLEROSIS
     Dosage: 30 UG; QW; IM
     Route: 030
     Dates: start: 19970822, end: 20030905
  2. AVONEX [Suspect]
     Indication: MULTIPLE SCLEROSIS
     Dosage: 30 UG; QW; IM
     Route: 030
     Dates: start: 20030914, end: 20050708
  3. DITROPAN XL [Concomitant]
  4. FEMARA [Concomitant]
  5. INDERAL LA [Concomitant]
  6. BACLOFEN [Concomitant]
  7. EFFEXOR [Concomitant]

REACTIONS (2)
  - COLON CANCER STAGE IV [None]
  - METASTASES TO LIVER [None]
